FAERS Safety Report 9962548 (Version 1)
Quarter: 2014Q1

REPORT INFORMATION
  Report Type: Report from Study
  Country: US (occurrence: US)
  Receive Date: 20140305
  Receipt Date: 20140305
  Transmission Date: 20141002
  Serious: No
  Sender: FDA-Public Use
  Company Number: US-ABBVIE-13P-163-1115524-00

PATIENT
  Sex: Female

DRUGS (8)
  1. HUMIRA [Suspect]
     Indication: CROHN^S DISEASE
     Dates: start: 20130620, end: 20130620
  2. HUMIRA [Suspect]
  3. BENTYL [Concomitant]
     Indication: IRRITABLE BOWEL SYNDROME
     Dosage: 20 ONCE DAILY
  4. PROPANOLOL [Concomitant]
     Indication: MIGRAINE PROPHYLAXIS
     Dosage: 40 MG TWICE DAILY
  5. PROPANOLOL [Concomitant]
     Indication: TACHYCARDIA
  6. AMITRIPTYLINE [Concomitant]
     Indication: MIGRAINE PROPHYLAXIS
     Dosage: 20 MG AT BEDTIME
  7. ZOMIG [Concomitant]
     Indication: MIGRAINE
  8. PROMETHAZINE [Concomitant]
     Indication: GASTROINTESTINAL PAIN
     Dosage: 25 MG AS NEEDED EVERY 6 HOURS

REACTIONS (4)
  - Wound complication [Not Recovered/Not Resolved]
  - Anal fistula [Not Recovered/Not Resolved]
  - Anal abscess [Not Recovered/Not Resolved]
  - Wound complication [Not Recovered/Not Resolved]
